FAERS Safety Report 6218903-4 (Version None)
Quarter: 2009Q2

REPORT INFORMATION
  Report Type: 
  Country: None (occurrence: None)
  Receive Date: 20090608
  Receipt Date: 20090526
  Transmission Date: 20091009
  Serious: Yes (Other)
  Sender: FDA-Public Use
  Company Number: IN-MYLANLABS-2009S1009235

PATIENT
  Age: 32 Year
  Sex: Male

DRUGS (5)
  1. TRAMADOL HCL [Suspect]
     Indication: PAIN
  2. CETIRIZINE [Concomitant]
     Indication: RHINITIS ALLERGIC
  3. ALBENDAZOLE [Concomitant]
     Indication: TAENIASIS
  4. PHENYTOIN [Concomitant]
  5. RANITIDINE [Concomitant]

REACTIONS (2)
  - AGGRESSION [None]
  - DELIRIUM [None]
